FAERS Safety Report 17245955 (Version 1)
Quarter: 2020Q1

REPORT INFORMATION
  Report Type: Spontaneous
  Country: DK (occurrence: DK)
  Receive Date: 20200108
  Receipt Date: 20200108
  Transmission Date: 20200409
  Serious: Yes (Hospitalization, Disabling)
  Sender: FDA-Public Use
  Company Number: DK-TEVA-2020-DK-1163452

PATIENT
  Age: 59 Year
  Sex: Female

DRUGS (4)
  1. DOLOL [Concomitant]
     Active Substance: TRAMADOL
     Indication: PAIN
     Dosage: STRENGTH: 100 MG
     Route: 048
     Dates: start: 2017, end: 2018
  2. FURIX [Concomitant]
     Indication: DIURETIC THERAPY
     Dosage: STRENGTH: 40 MG
     Route: 048
     Dates: start: 20190114
  3. CELECOXIB. [Suspect]
     Active Substance: CELECOXIB
     Indication: ARTHRITIS
     Dosage: STRENGTH: 200 MG
     Route: 048
     Dates: start: 2004, end: 20190112
  4. PINEX [Concomitant]
     Indication: PAIN
     Dosage: STRENGTH: 500 MG
     Route: 048
     Dates: start: 2014

REACTIONS (11)
  - Dizziness [Unknown]
  - Pulmonary thrombosis [Recovered/Resolved]
  - Cough [Unknown]
  - Productive cough [Unknown]
  - Memory impairment [Unknown]
  - Chest pain [Unknown]
  - Bundle branch block left [Unknown]
  - Chest discomfort [Unknown]
  - Dyspnoea [Not Recovered/Not Resolved]
  - Ejection fraction decreased [Unknown]
  - Cardiac failure [Recovered/Resolved]

NARRATIVE: CASE EVENT DATE: 201804
